FAERS Safety Report 24562905 (Version 1)
Quarter: 2024Q4

REPORT INFORMATION
  Report Type: Spontaneous
  Country: US (occurrence: US)
  Receive Date: 20241030
  Receipt Date: 20241030
  Transmission Date: 20250114
  Serious: Yes (Other)
  Sender: STRIDES
  Company Number: US-STRIDES ARCOLAB LIMITED-2024SP013960

PATIENT

DRUGS (2)
  1. PREDNISOLONE [Suspect]
     Active Substance: PREDNISOLONE
     Indication: Juvenile idiopathic arthritis
     Dosage: 0.5 MILLIGRAM/KILOGRAM, QD (SYSTEMIC)
     Route: 065
  2. NAPROXEN [Suspect]
     Active Substance: NAPROXEN
     Indication: Arthralgia
     Dosage: UNK, BID
     Route: 065

REACTIONS (3)
  - Normocytic anaemia [Unknown]
  - Drug ineffective for unapproved indication [Unknown]
  - Disease progression [Recovered/Resolved]
